FAERS Safety Report 5070607-X (Version None)
Quarter: 2006Q3

REPORT INFORMATION
  Report Type: 
  Country: None (occurrence: None)
  Receive Date: 20060804
  Receipt Date: 20050718
  Transmission Date: 20061208
  Serious: No
  Sender: FDA-Public Use
  Company Number: US-GLAXOSMITHKLINE-A0566613A

PATIENT
  Age: 50 Year
  Sex: Female

DRUGS (1)
  1. NICORETTE [Suspect]
     Dates: start: 20050617

REACTIONS (4)
  - ABDOMINAL PAIN UPPER [None]
  - GASTROOESOPHAGEAL REFLUX DISEASE [None]
  - NICOTINE DEPENDENCE [None]
  - PAROSMIA [None]
